FAERS Safety Report 10214764 (Version 3)
Quarter: 2014Q4

REPORT INFORMATION
  Report Type: Spontaneous
  Country: US (occurrence: US)
  Receive Date: 20140603
  Receipt Date: 20141230
  Transmission Date: 20150528
  Serious: Yes (Life-Threatening, Hospitalization)
  Sender: FDA-Public Use
  Company Number: US-BAYER-2014-080586

PATIENT
  Age: 22 Year
  Sex: Female
  Weight: 61.22 kg

DRUGS (2)
  1. VALTREX [Concomitant]
     Active Substance: VALACYCLOVIR HYDROCHLORIDE
     Indication: PAPILLOMA VIRAL INFECTION
     Dosage: UNK
     Dates: start: 2006
  2. MIRENA [Suspect]
     Active Substance: LEVONORGESTREL
     Indication: CONTRACEPTION
     Dosage: 20 MCG/24HR, CONT
     Route: 015
     Dates: start: 20100324, end: 20120906

REACTIONS (12)
  - Anhedonia [None]
  - Uterine perforation [None]
  - Dysmenorrhoea [None]
  - Emotional distress [None]
  - Infection [None]
  - Abdominal pain upper [None]
  - Fibrosis [None]
  - Device issue [None]
  - Injury [None]
  - Anxiety [None]
  - Fear [None]
  - General physical health deterioration [None]

NARRATIVE: CASE EVENT DATE: 2010
